FAERS Safety Report 7249348-6 (Version None)
Quarter: 2011Q1

REPORT INFORMATION
  Report Type: 
  Country: None (occurrence: None)
  Receive Date: 20110128
  Receipt Date: 20101130
  Transmission Date: 20110831
  Serious: Yes (Hospitalization, Other)
  Sender: FDA-Public Use
  Company Number: US-BAYER-201025482NA

PATIENT
  Sex: Female
  Weight: 48 kg

DRUGS (8)
  1. CLONAZEPAM [Concomitant]
     Indication: PANIC ATTACK
     Dosage: UNK
     Dates: start: 20041101
  2. TRAZODONE [Concomitant]
     Indication: PANIC ATTACK
  3. LORAZEPAM [Concomitant]
     Indication: PANIC ATTACK
     Dosage: UNK
     Dates: start: 20071115
  4. TRAZODONE [Concomitant]
     Indication: DEPRESSION
  5. REMERON [Concomitant]
     Indication: SLEEP DISORDER THERAPY
  6. REMERON [Concomitant]
     Indication: DEPRESSION
  7. YASMIN [Suspect]
     Indication: CONTRACEPTION
     Dosage: UNK
     Route: 048
     Dates: start: 20051101, end: 20060401
  8. EFFEXOR XR [Concomitant]
     Indication: PANIC ATTACK
     Dosage: UNK
     Dates: start: 20070201, end: 20070615

REACTIONS (5)
  - CHOLELITHIASIS [None]
  - NAUSEA [None]
  - CHOLECYSTITIS [None]
  - VOMITING [None]
  - ABDOMINAL PAIN UPPER [None]
